FAERS Safety Report 8050871-5 (Version None)
Quarter: 2012Q1

REPORT INFORMATION
  Report Type: 
  Country: None (occurrence: None)
  Receive Date: 20120117
  Receipt Date: 20120105
  Transmission Date: 20120608
  Serious: Yes (Other)
  Sender: FDA-Public Use
  Company Number: PHHY2012FR001983

PATIENT
  Age: 35 Year
  Sex: Male

DRUGS (3)
  1. CYCLOSPORINE [Suspect]
     Indication: APLASTIC ANAEMIA
     Dosage: 5 MG/KG, UNK
  2. PREDNISONE [Concomitant]
     Dosage: 1 MG/KG, DAILY
  3. IMMUNE GLOBULIN (HUMAN) [Suspect]
     Dosage: UNK UKN, UNK

REACTIONS (3)
  - APLASTIC ANAEMIA [None]
  - SKIN DISORDER [None]
  - NO THERAPEUTIC RESPONSE [None]
